FAERS Safety Report 20170357 (Version 1)
Quarter: 2021Q4

REPORT INFORMATION
  Report Type: Spontaneous
  Country: GB (occurrence: GB)
  Receive Date: 20211210
  Receipt Date: 20211210
  Transmission Date: 20220303
  Serious: Yes (Other)
  Sender: FDA-Public Use
  Company Number: GB-OTSUKA-2021_042415

PATIENT
  Age: 42 Year
  Sex: Male

DRUGS (1)
  1. ABILIFY [Suspect]
     Active Substance: ARIPIPRAZOLE
     Indication: Product used for unknown indication
     Dosage: 20 MG
     Route: 065
     Dates: start: 2008

REACTIONS (4)
  - Dependence [Unknown]
  - Intentional self-injury [Unknown]
  - Compulsions [Unknown]
  - Gambling disorder [Unknown]
